FAERS Safety Report 8462236-2 (Version None)
Quarter: 2012Q2

REPORT INFORMATION
  Report Type: 
  Country: None (occurrence: None)
  Receive Date: 20120625
  Receipt Date: 20120618
  Transmission Date: 20120825
  Serious: Yes (Hospitalization)
  Sender: FDA-Public Use
  Company Number: US-BAYER-2012-060865

PATIENT
  Age: 19 Year
  Sex: Female
  Weight: 75 kg

DRUGS (6)
  1. DROSPIRENONE AND ETHINYL ESTRADIOL [Suspect]
  2. AMOXICILLIN [Concomitant]
     Dosage: 875 MG, UNK
     Route: 048
     Dates: start: 20110207
  3. YAZ [Suspect]
     Indication: DYSMENORRHOEA
  4. TRAMADOL HCL [Concomitant]
     Dosage: 50 MG, UNK
     Route: 048
     Dates: start: 20110214
  5. BENZONATATE [Concomitant]
     Dosage: 100 MG, UNK
     Route: 048
     Dates: start: 20110207
  6. ZITHROMAX [Concomitant]
     Dosage: UNK
     Route: 048
     Dates: start: 20110213

REACTIONS (1)
  - PULMONARY EMBOLISM [None]
